FAERS Safety Report 20132004 (Version 1)
Quarter: 2021Q4

REPORT INFORMATION
  Report Type: Spontaneous
  Country: CA (occurrence: None)
  Receive Date: 20211130
  Receipt Date: 20211130
  Transmission Date: 20220303
  Serious: Yes (Life-Threatening, Disabling, Other)
  Sender: FDA-Public Use
  Company Number: None

PATIENT
  Age: 52 Year
  Sex: Female
  Weight: 67.5 kg

DRUGS (1)
  1. ESTROGEL [Suspect]
     Active Substance: ESTRADIOL
     Indication: Menopause
     Route: 061

REACTIONS (9)
  - Visual field defect [None]
  - Blindness [None]
  - Optic atrophy [None]
  - Reaction to preservatives [None]
  - Retinal disorder [None]
  - Neck pain [None]
  - Pain [None]
  - Burning sensation [None]
  - Muscular weakness [None]

NARRATIVE: CASE EVENT DATE: 20200201
